FAERS Safety Report 10382305 (Version 1)
Quarter: 2014Q3

REPORT INFORMATION
  Report Type: Spontaneous
  Country: US (occurrence: None)
  Receive Date: 20140811
  Receipt Date: 20140811
  Transmission Date: 20150326
  Serious: Yes (Other)
  Sender: FDA-Public Use
  Company Number: 2014UCU075000226

PATIENT
  Age: 48 Year
  Sex: Female
  Weight: 96.16 kg

DRUGS (11)
  1. IMODIUM [Concomitant]
     Active Substance: LOPERAMIDE HYDROCHLORIDE
  2. ADALIMUMAB [Concomitant]
     Active Substance: ADALIMUMAB
  3. INFLIXIMAB [Concomitant]
     Active Substance: INFLIXIMAB
  4. LOPERAMIDE [Concomitant]
     Active Substance: LOPERAMIDE
  5. CIMZIA [Suspect]
     Active Substance: CERTOLIZUMAB PEGOL
     Indication: CROHN^S DISEASE
     Dates: start: 20140306
  6. DIFLUCAN [Concomitant]
     Active Substance: FLUCONAZOLE
  7. AZATHIOPRINE. [Suspect]
     Active Substance: AZATHIOPRINE
     Dates: start: 20140522, end: 20140610
  8. MESALAMINE. [Concomitant]
     Active Substance: MESALAMINE
  9. VEDOLIZUMAB [Concomitant]
     Active Substance: VEDOLIZUMAB
  10. PREDNISONE. [Suspect]
     Active Substance: PREDNISONE
     Dates: start: 20091125, end: 20091225
  11. ACETAMINOPHEN. [Concomitant]
     Active Substance: ACETAMINOPHEN

REACTIONS (2)
  - Unevaluable event [None]
  - Oral candidiasis [None]

NARRATIVE: CASE EVENT DATE: 20140606
